FAERS Safety Report 6525700-9 (Version None)
Quarter: 2009Q4

REPORT INFORMATION
  Report Type: 
  Country: None (occurrence: None)
  Receive Date: 20091214
  Receipt Date: 20090107
  Transmission Date: 20100525
  Serious: Yes (Other)
  Sender: FDA-Public Use
  Company Number: 606756

PATIENT
  Age: 51 Year
  Sex: Female

DRUGS (10)
  1. PEGASYS [Suspect]
     Indication: DRUG USE FOR UNKNOWN INDICATION
     Dates: start: 20060101, end: 20080101
  2. MAGNESIUM SULFATE [Concomitant]
  3. VITAMIN D NOS (VITAMIN D NOS) [Concomitant]
  4. ASCORBIC ACID [Concomitant]
  5. CENTRUM (MINERALS NOS/MULTIVITAMIN NOS) [Concomitant]
  6. VITAMIN B (VITAMIN B NOS) [Concomitant]
  7. FISH OIL (FATTY ACIDS NOS) [Concomitant]
  8. POTASSIUM (POTASSIUM NOS) [Concomitant]
  9. CALCIUM (CALCIUM) [Concomitant]
  10. GARLIC (ALLIUM SATIVUM) [Concomitant]

REACTIONS (2)
  - BLOOD COUNT ABNORMAL [None]
  - FATIGUE [None]
